FAERS Safety Report 7306095-X (Version None)
Quarter: 2011Q1

REPORT INFORMATION
  Report Type: 
  Country: None (occurrence: None)
  Receive Date: 20110222
  Receipt Date: 20110221
  Transmission Date: 20110831
  Serious: No
  Sender: FDA-Public Use
  Company Number: DE-MERCK-1102DEU00057

PATIENT
  Age: 45 Year
  Sex: Male

DRUGS (3)
  1. ISENTRESS [Suspect]
     Indication: HIV INFECTION
     Route: 048
     Dates: start: 20100907
  2. EMTRICITABINE AND TENOFOVIR DISOPROXIL FUMARATE [Concomitant]
     Indication: HIV INFECTION
     Route: 048
     Dates: start: 20100601
  3. OMEPRAZOLE [Concomitant]
     Route: 048
     Dates: start: 20100907

REACTIONS (2)
  - BLOOD PRESSURE INCREASED [None]
  - EPISTAXIS [None]
